FAERS Safety Report 5594640-4 (Version None)
Quarter: 2008Q1

REPORT INFORMATION
  Report Type: 
  Country: None (occurrence: None)
  Receive Date: 20080117
  Receipt Date: 20080109
  Transmission Date: 20080703
  Serious: Yes (Hospitalization)
  Sender: FDA-Public Use
  Company Number: FR-AVENTIS-200810085FR

PATIENT
  Age: 51 Year
  Sex: Male

DRUGS (12)
  1. LOVENOX [Suspect]
     Route: 058
     Dates: start: 20070226, end: 20070226
  2. MONOCRIXO [Suspect]
     Route: 048
     Dates: start: 20070226, end: 20070226
  3. CELESTENE                          /00008501/ [Concomitant]
     Dates: start: 20070226
  4. CELECTOL [Concomitant]
     Route: 048
  5. METFORMIN HCL [Concomitant]
  6. LAMALINE                           /00764901/ [Concomitant]
  7. NEXEN [Concomitant]
  8. SPIRONOLACTONE [Concomitant]
  9. MAG 2 [Concomitant]
  10. ARIXTRA [Concomitant]
     Dates: start: 20070224, end: 20070224
  11. BREXIN                             /00500404/ [Concomitant]
     Dates: start: 20070224, end: 20070225
  12. PARACETAMOL [Concomitant]
     Dates: start: 20070224, end: 20070225

REACTIONS (2)
  - FACE OEDEMA [None]
  - FORMICATION [None]
